FAERS Safety Report 8435705-9 (Version None)
Quarter: 2012Q2

REPORT INFORMATION
  Report Type: 
  Country: None (occurrence: None)
  Receive Date: 20120614
  Receipt Date: 20120607
  Transmission Date: 20120825
  Serious: Yes (Hospitalization, Other)
  Sender: FDA-Public Use
  Company Number: ES-JNJFOC-20120513978

PATIENT
  Age: 55 Year
  Sex: Male
  Weight: 76 kg

DRUGS (9)
  1. REMICADE [Suspect]
     Indication: COLITIS ULCERATIVE
     Route: 042
     Dates: start: 20110921
  2. AZATHIOPRINE [Concomitant]
     Route: 048
     Dates: start: 20110601, end: 20110926
  3. PREDNISONE TAB [Concomitant]
     Dosage: FIRST DOSE GIVEN INTRAVENOUSLY
     Dates: start: 20110407
  4. REMICADE [Suspect]
     Route: 042
     Dates: start: 20110429
  5. PREDNISONE TAB [Concomitant]
     Dosage: ORAL TAPER
     Dates: end: 20110608
  6. REMICADE [Suspect]
     Route: 042
     Dates: start: 20110511
  7. REMICADE [Suspect]
     Route: 042
     Dates: start: 20110601
  8. REMICADE [Suspect]
     Route: 042
     Dates: start: 20110727
  9. AZATHIOPRINE [Concomitant]
     Route: 048
     Dates: start: 20110429, end: 20110531

REACTIONS (2)
  - EPSTEIN-BARR VIRUS TEST POSITIVE [None]
  - LYMPHOMA [None]
